FAERS Safety Report 18661436 (Version 1)
Quarter: 2020Q4

REPORT INFORMATION
  Report Type: Report from Study
  Country: IN (occurrence: IN)
  Receive Date: 20201224
  Receipt Date: 20201224
  Transmission Date: 20210114
  Serious: Yes (Hospitalization)
  Sender: FDA-Public Use
  Company Number: IN-PFIZER INC-2020478466

PATIENT
  Age: 69 Year
  Sex: Male
  Weight: 66 kg

DRUGS (3)
  1. DACOMITINIB [Suspect]
     Active Substance: DACOMITINIB
     Indication: NON-SMALL CELL LUNG CANCER METASTATIC
     Dosage: 45 MG, DAILY
     Route: 048
     Dates: start: 20201107, end: 20201202
  2. AMLO [AMLODIPINE BESILATE] [Concomitant]
     Indication: HYPERTENSION
     Dosage: UNK,MG 2X/DAY
     Route: 048
     Dates: start: 20140510
  3. GLIMY [Concomitant]
     Indication: TYPE 2 DIABETES MELLITUS
     Dosage: UNK, MG 1X/DAY
     Route: 048
     Dates: start: 20140510

REACTIONS (1)
  - Pneumonia viral [Recovered/Resolved]

NARRATIVE: CASE EVENT DATE: 20201202
